FAERS Safety Report 18619558 (Version 1)
Quarter: 2020Q4

REPORT INFORMATION
  Report Type: Spontaneous
  Country: FR (occurrence: FR)
  Receive Date: 20201215
  Receipt Date: 20201215
  Transmission Date: 20210114
  Serious: Yes (Death, Hospitalization)
  Sender: FDA-Public Use
  Company Number: NVSC2020FR331668

PATIENT
  Age: 72 Year
  Sex: Male
  Weight: 107 kg

DRUGS (6)
  1. PRAVASTATIN SODIUM. [Concomitant]
     Active Substance: PRAVASTATIN SODIUM
     Indication: DYSLIPIDAEMIA
     Dosage: 20 MG, QD
     Route: 048
  2. TECENTRIQ [Suspect]
     Active Substance: ATEZOLIZUMAB
     Indication: BRONCHIAL CARCINOMA
     Dosage: 1 DF, CYCLIC
     Route: 042
     Dates: start: 20200212, end: 20201027
  3. METFORMINE [Concomitant]
     Active Substance: METFORMIN HYDROCHLORIDE
     Indication: DIABETES MELLITUS
     Dosage: 1000 MG, QD
     Route: 048
  4. ALLOPURINOL. [Suspect]
     Active Substance: ALLOPURINOL
     Indication: HYPERURICAEMIA
     Dosage: 200 MG, QD
     Route: 048
     Dates: end: 20201110
  5. DOLIPRANE [Concomitant]
     Active Substance: ACETAMINOPHEN
     Indication: PAIN
     Dosage: 3000 MG, QD
     Route: 048
  6. LEXOMIL [Concomitant]
     Active Substance: BROMAZEPAM
     Indication: ANXIETY
     Dosage: 3 MG, QD
     Route: 048

REACTIONS (3)
  - Acute kidney injury [Fatal]
  - Hepatitis [Fatal]
  - Rash pustular [Fatal]

NARRATIVE: CASE EVENT DATE: 202011
